FAERS Safety Report 10732513 (Version 3)
Quarter: 2019Q1

REPORT INFORMATION
  Report Type: Spontaneous
  Country: FR (occurrence: FR)
  Receive Date: 20150123
  Receipt Date: 20190307
  Transmission Date: 20190417
  Serious: Yes (Hospitalization, Other)
  Sender: FDA-Public Use
  Company Number: FR-MYLANLABS-2015M1001750

PATIENT
  Sex: Female
  Weight: 44 kg

DRUGS (4)
  1. METHOTREXATE. [Suspect]
     Active Substance: METHOTREXATE
     Indication: JUVENILE IDIOPATHIC ARTHRITIS
     Dosage: 10 MILLIGRAM, QW
  2. ETANERCEPT [Suspect]
     Active Substance: ETANERCEPT
     Dosage: 30 MILLIGRAM, QW
     Route: 058
     Dates: start: 201303, end: 20130710
  3. CORTANCYL [Suspect]
     Active Substance: PREDNISONE
     Indication: JUVENILE IDIOPATHIC ARTHRITIS
     Dosage: 10 MILLIGRAM, QD
     Route: 048
  4. ETANERCEPT [Suspect]
     Active Substance: ETANERCEPT
     Indication: JUVENILE IDIOPATHIC ARTHRITIS
     Dosage: 30 MILLIGRAM, QW
     Route: 058
     Dates: start: 201303, end: 201306

REACTIONS (3)
  - Major depression [Recovered/Resolved]
  - Asthenia [Recovered/Resolved]
  - Drug effect incomplete [Unknown]

NARRATIVE: CASE EVENT DATE: 201305
